FAERS Safety Report 8565380-4 (Version None)
Quarter: 2012Q3

REPORT INFORMATION
  Report Type: 
  Country: None (occurrence: None)
  Receive Date: 20120803
  Receipt Date: 20110720
  Transmission Date: 20120928
  Serious: Yes (Other)
  Sender: FDA-Public Use
  Company Number: CN-ROCHE-1096697

PATIENT
  Sex: Male

DRUGS (1)
  1. AVASTIN [Suspect]
     Indication: COLORECTAL CANCER
     Dates: end: 20110720

REACTIONS (3)
  - DISEASE PROGRESSION [None]
  - EPISTAXIS [None]
  - PERFORMANCE STATUS DECREASED [None]
